FAERS Safety Report 6267879-2 (Version None)
Quarter: 2009Q3

REPORT INFORMATION
  Report Type: 
  Country: None (occurrence: None)
  Receive Date: 20090710
  Receipt Date: 20090710
  Transmission Date: 20100115
  Serious: Yes (Other)
  Sender: FDA-Public Use
  Company Number: None

PATIENT
  Age: 54 Year
  Sex: Female
  Weight: 72.5755 kg

DRUGS (2)
  1. ZICAM NASAL GEL [Suspect]
     Indication: NASOPHARYNGITIS
     Dosage: 2-3 YEARS?
  2. ZICAM NASAL GEL [Suspect]
     Indication: PROPHYLAXIS
     Dosage: 2-3 YEARS?

REACTIONS (3)
  - ANOSMIA [None]
  - PAROSMIA [None]
  - PRODUCT QUALITY ISSUE [None]
